FAERS Safety Report 19872908 (Version 1)
Quarter: 2021Q3

REPORT INFORMATION
  Report Type: Spontaneous
  Country: IT (occurrence: IT)
  Receive Date: 20210922
  Receipt Date: 20210922
  Transmission Date: 20211014
  Serious: Yes (Hospitalization, Other)
  Sender: FDA-Public Use
  Company Number: IT-DSJP-DSE-2021-130511

PATIENT
  Age: 53 Year
  Sex: Male

DRUGS (2)
  1. TIROFIBAN [Suspect]
     Active Substance: TIROFIBAN
     Indication: THROMBOSIS PROPHYLAXIS
     Dosage: UNK
  2. PRASUGREL HYDROCHLORIDE [Suspect]
     Active Substance: PRASUGREL HYDROCHLORIDE
     Indication: THROMBOSIS PROPHYLAXIS
     Dosage: UNK

REACTIONS (4)
  - Pulmonary embolism [Unknown]
  - Venous thrombosis [Unknown]
  - COVID-19 pneumonia [Unknown]
  - Pulmonary infarction [Unknown]

NARRATIVE: CASE EVENT DATE: 202012
